FAERS Safety Report 25566703 (Version 2)
Quarter: 2025Q3

REPORT INFORMATION
  Report Type: Spontaneous
  Country: JP (occurrence: JP)
  Receive Date: 20250716
  Receipt Date: 20250805
  Transmission Date: 20251021
  Serious: Yes (Death, Other)
  Sender: ALEXION PHARMACEUTICALS
  Company Number: JP-AstraZeneca-CH-00900814A

PATIENT
  Age: 78 Year
  Sex: Male
  Weight: 40 kg

DRUGS (3)
  1. BREZTRI [Suspect]
     Active Substance: BUDESONIDE\FORMOTEROL\GLYCOPYRROLATE
     Indication: Chronic obstructive pulmonary disease
     Dosage: 2 DOSAGE FORM, BID
     Route: 065
     Dates: start: 202503, end: 202505
  2. CARBOCYSTEINE [Concomitant]
     Active Substance: CARBOCYSTEINE
  3. Astomin [Concomitant]

REACTIONS (4)
  - Death [Fatal]
  - Peritonitis [Unknown]
  - Pneumococcal infection [Unknown]
  - Pleural effusion [Unknown]

NARRATIVE: CASE EVENT DATE: 20250325
